FAERS Safety Report 4935168-1 (Version None)
Quarter: 2006Q1

REPORT INFORMATION
  Report Type: 
  Country: None (occurrence: None)
  Receive Date: 20060302
  Receipt Date: 20060220
  Transmission Date: 20060701
  Serious: Yes (Other)
  Sender: FDA-Public Use
  Company Number: 2006016078

PATIENT
  Age: 76 Year
  Sex: Male
  Weight: 64.4108 kg

DRUGS (8)
  1. LIPITOR [Suspect]
     Indication: BLOOD CHOLESTEROL INCREASED
     Dosage: 10 MG (10 MG, QD, INTERVAL:  EVERY DAY), ORAL
     Route: 048
     Dates: start: 20050101, end: 20060101
  2. NORVASC [Concomitant]
  3. ENALAPRIL MALEATE [Concomitant]
  4. AVAPRO [Concomitant]
  5. POTASSIUM (POTASSIUM) [Concomitant]
  6. SELENIUM (SELENIUM) [Concomitant]
  7. VITAMINS (VITAMINS) [Concomitant]
  8. TORSEMIDE [Concomitant]

REACTIONS (4)
  - BLOOD CREATININE INCREASED [None]
  - BLOOD UREA INCREASED [None]
  - FATIGUE [None]
  - MYALGIA [None]
